FAERS Safety Report 13346246 (Version 2)
Quarter: 2017Q2

REPORT INFORMATION
  Report Type: Spontaneous
  Country: US (occurrence: US)
  Receive Date: 20170317
  Receipt Date: 20170403
  Transmission Date: 20170830
  Serious: Yes (Other)
  Sender: FDA-Public Use
  Company Number: US-GLAXOSMITHKLINE-US2017037253

PATIENT
  Age: 79 Year
  Sex: Female

DRUGS (1)
  1. ADVAIR DISKUS [Suspect]
     Active Substance: FLUTICASONE PROPIONATE\SALMETEROL XINAFOATE
     Indication: ASTHMA
     Dosage: 1 PUFF(S), BID
     Route: 055
     Dates: start: 2012

REACTIONS (3)
  - Spinal compression fracture [Recovering/Resolving]
  - Total lung capacity decreased [Not Recovered/Not Resolved]
  - Fractured sacrum [Recovering/Resolving]

NARRATIVE: CASE EVENT DATE: 201512
